FAERS Safety Report 26210905 (Version 1)
Quarter: 2025Q4

REPORT INFORMATION
  Report Type: Report from Study
  Country: US (occurrence: US)
  Receive Date: 20251230
  Receipt Date: 20251230
  Transmission Date: 20260118
  Serious: Yes (Other)
  Sender: ABBVIE
  Company Number: US-ABBVIE-6039548

PATIENT
  Sex: Male

DRUGS (2)
  1. IMBRUVICA [Suspect]
     Active Substance: IBRUTINIB
     Indication: Chronic lymphocytic leukaemia
     Dosage: LAST ADMI DATE: 2022
     Route: 048
     Dates: start: 20220226
  2. IMBRUVICA [Suspect]
     Active Substance: IBRUTINIB
     Indication: Chronic lymphocytic leukaemia
     Route: 048
     Dates: start: 202212

REACTIONS (6)
  - Hip arthroplasty [Unknown]
  - Oral pain [Unknown]
  - Prostate cancer [Unknown]
  - Gout [Unknown]
  - Oral candidiasis [Unknown]
  - Tooth extraction [Unknown]
